FAERS Safety Report 7937982-7 (Version None)
Quarter: 2011Q4

REPORT INFORMATION
  Report Type: 
  Country: None (occurrence: None)
  Receive Date: 20111123
  Receipt Date: 20111117
  Transmission Date: 20120403
  Serious: Yes (Other)
  Sender: FDA-Public Use
  Company Number: US-US-EMD SERONO, INC.-7039805

PATIENT
  Sex: Female

DRUGS (2)
  1. REBIF [Suspect]
     Indication: PRODUCT USED FOR UNKNOWN INDICATION
     Route: 058
     Dates: start: 20100702, end: 20101201
  2. REBIF [Suspect]
     Route: 058
     Dates: start: 20110601

REACTIONS (5)
  - CHOLECYSTECTOMY [None]
  - INJECTION SITE PAIN [None]
  - WEIGHT DECREASED [None]
  - PNEUMONIA [None]
  - HERPES ZOSTER [None]
